FAERS Safety Report 20832888 (Version 1)
Quarter: 2022Q2

REPORT INFORMATION
  Report Type: Report from Study
  Country: IN (occurrence: IN)
  Receive Date: 20220516
  Receipt Date: 20220516
  Transmission Date: 20220721
  Serious: Yes (Death, Other)
  Sender: FDA-Public Use
  Company Number: IN-SA-2022SA169499

PATIENT

DRUGS (4)
  1. DOCETAXEL [Suspect]
     Active Substance: DOCETAXEL
     Indication: Chemotherapy
     Dosage: 50 MG/M2, 2-HOUR INTRAVENOUS (IV) INFUSION
     Route: 042
  2. OXALIPLATIN [Suspect]
     Active Substance: OXALIPLATIN
     Indication: Chemotherapy
     Dosage: 85 MG/M2, 2-HOUR INTRAVENOUS (IV) INFUSION
     Route: 042
  3. FLUOROURACIL SODIUM [Suspect]
     Active Substance: FLUOROURACIL SODIUM
     Indication: Chemotherapy
     Dosage: 1200 MG/M2, 24-HOUR INFUSION ON DAY 1 AND DAY 2
  4. LEUCOVORIN [Suspect]
     Active Substance: LEUCOVORIN
     Indication: Chemotherapy
     Dosage: 400 MG/M2, INJECTION LEUCOVORIN WAS ADMINISTERED AS IV INFUSION ON DAYS 1 AND 2

REACTIONS (3)
  - Neutropenic sepsis [Fatal]
  - Septic shock [Fatal]
  - Cardiac arrest [Unknown]
